FAERS Safety Report 24888748 (Version 1)
Quarter: 2025Q1

REPORT INFORMATION
  Report Type: Spontaneous
  Country: US (occurrence: US)
  Receive Date: 20250127
  Receipt Date: 20250127
  Transmission Date: 20250408
  Serious: Yes (Other)
  Sender: UCB
  Company Number: US-UCBSA-2025004078

PATIENT
  Sex: Female
  Weight: 58.05 kg

DRUGS (1)
  1. CIMZIA [Suspect]
     Active Substance: CERTOLIZUMAB PEGOL
     Indication: Crohn^s disease
     Dosage: 200 MILLIGRAM, WEEKLY (QW)
     Route: 058

REACTIONS (4)
  - Skin cancer [Recovered/Resolved]
  - Precancerous lesion excision [Recovered/Resolved]
  - Off label use [Unknown]
  - Therapeutic response shortened [Unknown]
